FAERS Safety Report 13501894 (Version 15)
Quarter: 2018Q3

REPORT INFORMATION
  Report Type: Report from Study
  Country: CN (occurrence: CN)
  Receive Date: 20170502
  Receipt Date: 20180822
  Transmission Date: 20181010
  Serious: Yes (Hospitalization)
  Sender: FDA-Public Use
  Company Number: CN-ROCHE-1923407

PATIENT
  Age: 65 Year
  Sex: Female
  Weight: 56 kg

DRUGS (93)
  1. PROMETHAZINE [Concomitant]
     Active Substance: PROMETHAZINE\PROMETHAZINE HYDROCHLORIDE
     Route: 065
     Dates: start: 20170126, end: 20170412
  2. METHOXYPHENAMINE [Concomitant]
     Active Substance: METHOXYPHENAMINE
     Route: 065
     Dates: start: 20170610, end: 20170705
  3. PIPERACILLIN SODIUM/TAZOBACTAM [Concomitant]
     Active Substance: PIPERACILLIN SODIUM\TAZOBACTAM SODIUM
     Route: 065
     Dates: start: 20170503, end: 20170515
  4. LEVOFLOXACIN MESYLATE [Concomitant]
     Active Substance: LEVOFLOXACIN
     Route: 065
     Dates: start: 20170420, end: 20170430
  5. LEVOFLOXACIN MESYLATE [Concomitant]
     Active Substance: LEVOFLOXACIN
     Route: 065
     Dates: start: 20170503, end: 20170515
  6. GLYCYRRHIZIN [Concomitant]
     Active Substance: GLYCYRRHIZIN
     Route: 065
     Dates: start: 20170612, end: 20170617
  7. TRASTUZUMAB. [Suspect]
     Active Substance: TRASTUZUMAB
     Indication: HER-2 POSITIVE BREAST CANCER
     Dosage: LOADING DOSE AS PER PROTOCOL.
     Route: 042
     Dates: start: 20170126
  8. CIMETIDINE [Concomitant]
     Active Substance: CIMETIDINE
     Route: 065
     Dates: start: 20170126, end: 20170412
  9. METHOXYPHENAMINE [Concomitant]
     Active Substance: METHOXYPHENAMINE
     Indication: COUGH
     Route: 065
     Dates: start: 20170419, end: 20170419
  10. CEFRADINE [Concomitant]
     Active Substance: CEPHRADINE
     Route: 065
     Dates: start: 20170410, end: 20170416
  11. PEGFILGRASTIM [Concomitant]
     Active Substance: PEGFILGRASTIM
     Route: 065
     Dates: start: 20170311, end: 20170311
  12. PIPERACILLIN SODIUM/TAZOBACTAM [Concomitant]
     Active Substance: PIPERACILLIN SODIUM\TAZOBACTAM SODIUM
     Route: 065
     Dates: start: 20170418, end: 20170425
  13. PULMICORT RESPULES [Concomitant]
     Active Substance: BUDESONIDE
     Indication: ASTHMA
     Route: 055
     Dates: start: 20170610, end: 20170617
  14. RANITIDINE HYDROCHLORIDE. [Concomitant]
     Active Substance: RANITIDINE HYDROCHLORIDE
     Route: 065
     Dates: start: 20170509, end: 20170515
  15. EUCALYPTOL/LIMONENE/PINENE [Concomitant]
     Indication: COUGH
     Route: 065
     Dates: start: 20170503, end: 20170609
  16. AMLODIPINE BESYLATE. [Concomitant]
     Active Substance: AMLODIPINE BESYLATE
     Indication: HYPERTENSION
     Route: 065
     Dates: start: 20170723, end: 20170807
  17. DEXTROMETHORPHAN HYDROBROMIDE. [Concomitant]
     Active Substance: DEXTROMETHORPHAN HYDROBROMIDE
     Route: 065
     Dates: start: 20170807, end: 20170810
  18. PSEUDOEPHEDRINE HYDROCHLORIDE. [Concomitant]
     Active Substance: PSEUDOEPHEDRINE HYDROCHLORIDE
     Indication: NASOPHARYNGITIS
     Route: 065
     Dates: start: 20180112, end: 20180117
  19. CHLORPHENAMINE MALEATE [Concomitant]
     Active Substance: CHLORPHENIRAMINE MALEATE
     Indication: NASOPHARYNGITIS
     Route: 065
     Dates: start: 20180112, end: 20180117
  20. ROXITHROMYCIN [Concomitant]
     Active Substance: ROXITHROMYCIN
     Route: 065
     Dates: start: 20180112, end: 20180120
  21. INDOMETACIN [Concomitant]
     Active Substance: INDOMETHACIN
     Indication: PYREXIA
     Route: 065
     Dates: start: 20170314, end: 20170317
  22. METHOXYPHENAMINE [Concomitant]
     Active Substance: METHOXYPHENAMINE
     Indication: PNEUMONIA
     Dosage: COMPOUND METHOXYPHENAMINE CAPSULES
     Route: 065
     Dates: start: 20170406, end: 20170416
  23. PEGFILGRASTIM [Concomitant]
     Active Substance: PEGFILGRASTIM
     Route: 065
     Dates: start: 20170218, end: 20170218
  24. POTASSIUM CHLORIDE. [Concomitant]
     Active Substance: POTASSIUM CHLORIDE
     Route: 065
     Dates: start: 20170422, end: 20170425
  25. PIPERACILLIN SODIUM/TAZOBACTAM [Concomitant]
     Active Substance: PIPERACILLIN SODIUM\TAZOBACTAM SODIUM
     Route: 065
     Dates: start: 20170425, end: 20170430
  26. METHYLPREDNISOLONE SODIUM SUCCINATE. [Concomitant]
     Active Substance: METHYLPREDNISOLONE SODIUM SUCCINATE
     Route: 065
     Dates: start: 20170617, end: 20170627
  27. METHYLPREDNISOLONE SODIUM SUCCINATE. [Concomitant]
     Active Substance: METHYLPREDNISOLONE SODIUM SUCCINATE
     Route: 065
     Dates: start: 20170610, end: 20170617
  28. POTASSIUM CHLORIDE. [Concomitant]
     Active Substance: POTASSIUM CHLORIDE
     Route: 065
     Dates: start: 20170612, end: 20170617
  29. AMBROXOL HYDROCHLORIDE/GLUCOSE [Concomitant]
     Indication: COUGH
     Route: 065
     Dates: start: 20170807, end: 20170818
  30. LEVOFLOXACIN. [Concomitant]
     Active Substance: LEVOFLOXACIN
     Route: 065
     Dates: start: 20180114, end: 20180120
  31. COMPOUND SODIUM CHLORIDE [Concomitant]
     Route: 065
     Dates: start: 20170418, end: 20170422
  32. DOCETAXEL. [Suspect]
     Active Substance: DOCETAXEL
     Indication: HER-2 POSITIVE BREAST CANCER
     Dosage: 75 MG/M2 (AS PER PROTOCOL) ONCE IN 3 WEEKS (CYCLES 1?4 PER PROTOCOL).?DATE OF LAST DOSE OF DOCETAXEL
     Route: 042
     Dates: start: 20170126
  33. PALONOSETRON HYDROCHLORIDE. [Concomitant]
     Active Substance: PALONOSETRON HYDROCHLORIDE
     Indication: PROPHYLAXIS OF NAUSEA AND VOMITING
     Route: 065
     Dates: start: 20170126, end: 20170412
  34. METHOXYPHENAMINE [Concomitant]
     Active Substance: METHOXYPHENAMINE
     Indication: ASTHMA
     Route: 065
     Dates: start: 20170427, end: 20170427
  35. DOXOFYLLINE [Concomitant]
     Active Substance: DOXOFYLLINE
     Indication: ASTHMA
  36. SODIUM CHLORIDE. [Concomitant]
     Active Substance: SODIUM CHLORIDE
     Dosage: CONCENTRATED
     Route: 065
     Dates: start: 20170422, end: 20170425
  37. FLUCONAZOLE. [Concomitant]
     Active Substance: FLUCONAZOLE
     Indication: COUGH
     Route: 065
     Dates: start: 20170503, end: 20170515
  38. METHYLPREDNISOLONE SODIUM SUCCINATE. [Concomitant]
     Active Substance: METHYLPREDNISOLONE SODIUM SUCCINATE
     Indication: COUGH
     Route: 065
     Dates: start: 20170509, end: 20170515
  39. RANITIDINE HYDROCHLORIDE. [Concomitant]
     Active Substance: RANITIDINE HYDROCHLORIDE
     Route: 065
     Dates: start: 20170610, end: 20170701
  40. ACETYLCYSTEINE. [Concomitant]
     Active Substance: ACETYLCYSTEINE
     Indication: COUGH
     Route: 065
     Dates: start: 20170617, end: 20170710
  41. CHLORPHENAMINE MALEATE [Concomitant]
     Active Substance: CHLORPHENIRAMINE MALEATE
     Route: 065
     Dates: start: 20170807, end: 20170810
  42. ZOLEDRONIC ACID [Concomitant]
     Active Substance: ZOLEDRONIC ACID
     Route: 065
     Dates: start: 20171012
  43. TRASTUZUMAB. [Suspect]
     Active Substance: TRASTUZUMAB
     Dosage: MAINTENANCE DOSE.?DATE OF LAST DOSE OF TRASTUZUMAB AT 342 MG ON 09/MAR/2017.
     Route: 042
     Dates: start: 20170216
  44. DEXAMETHASONE. [Concomitant]
     Active Substance: DEXAMETHASONE
     Route: 065
     Dates: start: 20170125, end: 20170413
  45. INDOMETACIN [Concomitant]
     Active Substance: INDOMETHACIN
     Route: 065
     Dates: start: 20170417, end: 20170417
  46. POTASSIUM CHLORIDE. [Concomitant]
     Active Substance: POTASSIUM CHLORIDE
     Route: 065
     Dates: start: 20170418, end: 20170419
  47. DOXOFYLLINE [Concomitant]
     Active Substance: DOXOFYLLINE
     Indication: COUGH
     Route: 065
     Dates: start: 20170418, end: 20170422
  48. QIANG LI PI PA LU [Concomitant]
     Indication: COUGH
     Route: 065
     Dates: start: 20170419, end: 20170419
  49. EUCALYPTOL/LIMONENE/PINENE [Concomitant]
     Route: 065
     Dates: start: 20170815
  50. AZITHROMYCIN ANHYDROUS. [Concomitant]
     Active Substance: AZITHROMYCIN ANHYDROUS
     Route: 065
     Dates: start: 20170610, end: 20170612
  51. SALBUTAMOL SULFATE INHALER [Concomitant]
     Indication: ASTHMA
  52. GLUCOSE [Concomitant]
     Active Substance: DEXTROSE
     Route: 065
     Dates: start: 20170612, end: 20170617
  53. PARACETAMOL [Concomitant]
     Active Substance: ACETAMINOPHEN
     Route: 065
     Dates: start: 20170807, end: 20170810
  54. LEVOFLOXACIN. [Concomitant]
     Active Substance: LEVOFLOXACIN
     Route: 065
     Dates: start: 20180609, end: 20180616
  55. LATAMOXEF SODIUM [Concomitant]
     Route: 065
     Dates: start: 20170330, end: 20170409
  56. METHOXYPHENAMINE [Concomitant]
     Active Substance: METHOXYPHENAMINE
     Route: 065
     Dates: start: 20170812, end: 20170901
  57. POTASSIUM CHLORIDE. [Concomitant]
     Active Substance: POTASSIUM CHLORIDE
     Route: 065
     Dates: start: 20170612, end: 20170617
  58. LEVOFLOXACIN MESYLATE [Concomitant]
     Active Substance: LEVOFLOXACIN
     Route: 065
     Dates: start: 20170612, end: 20170617
  59. METOCLOPRAMIDE DIHYDROCHLORIDE [Concomitant]
     Indication: VOMITING
     Route: 065
     Dates: start: 20170422, end: 20170425
  60. CEFOXITIN SODIUM [Concomitant]
     Active Substance: CEFOXITIN SODIUM
     Route: 065
     Dates: start: 20170610, end: 20170617
  61. DESLORATADINE. [Concomitant]
     Active Substance: DESLORATADINE
     Indication: ECZEMA
     Route: 065
     Dates: start: 20170715, end: 20170715
  62. METOPROLOL TARTRATE. [Concomitant]
     Active Substance: METOPROLOL TARTRATE
     Indication: HYPERTENSION
     Route: 065
     Dates: start: 20170721, end: 20170807
  63. IRBESARTAN. [Concomitant]
     Active Substance: IRBESARTAN
     Indication: HYPERTENSION
     Route: 065
     Dates: start: 20170723
  64. AMBROXOL HYDROCHLORIDE/GLUCOSE [Concomitant]
     Indication: PRODUCTIVE COUGH
  65. CHLORPHENAMINE MALEATE [Concomitant]
     Active Substance: CHLORPHENIRAMINE MALEATE
     Route: 065
     Dates: start: 20171013, end: 20171013
  66. GLYCYRRHIZA [Concomitant]
     Active Substance: LICORICE
     Route: 065
     Dates: start: 20170410, end: 20170430
  67. PULMICORT RESPULES [Concomitant]
     Active Substance: BUDESONIDE
     Route: 065
     Dates: start: 20170420, end: 20170422
  68. PARACETAMOL [Concomitant]
     Active Substance: ACETAMINOPHEN
     Indication: NASOPHARYNGITIS
     Route: 065
     Dates: start: 20180112, end: 20180117
  69. LEVOFLOXACIN. [Concomitant]
     Active Substance: LEVOFLOXACIN
     Route: 065
     Dates: start: 20180511, end: 20180514
  70. KEKE PIAN (TCM) [Concomitant]
     Indication: COUGH
     Route: 065
     Dates: start: 20180115, end: 20180120
  71. VITAMIN B6 [Concomitant]
     Active Substance: PYRIDOXINE HYDROCHLORIDE
     Indication: PROPHYLAXIS OF NAUSEA AND VOMITING
     Route: 065
     Dates: start: 20170126, end: 20170412
  72. PEGFILGRASTIM [Concomitant]
     Active Substance: PEGFILGRASTIM
     Route: 065
     Dates: start: 20170414, end: 20170414
  73. FILGRASTIM [Concomitant]
     Active Substance: FILGRASTIM
     Route: 065
     Dates: start: 20170419, end: 20170419
  74. SODIUM CHLORIDE. [Concomitant]
     Active Substance: SODIUM CHLORIDE
     Dosage: CONCENTRATED
     Route: 065
     Dates: start: 20170418, end: 20170419
  75. SALBUTAMOL SULFATE INHALER [Concomitant]
     Indication: COUGH
     Route: 065
     Dates: start: 20170610, end: 20170617
  76. PERTUZUMAB. [Suspect]
     Active Substance: PERTUZUMAB
     Indication: HER-2 POSITIVE BREAST CANCER
     Dosage: LOADING DOSE AS PER PROTOCOL
     Route: 042
     Dates: start: 20170126
  77. DEXAMETHASONE SODIUM PHOSPHATE. [Concomitant]
     Active Substance: DEXAMETHASONE SODIUM PHOSPHATE
     Route: 065
     Dates: start: 20170126, end: 20170412
  78. HEPARIN SODIUM. [Concomitant]
     Active Substance: HEPARIN SODIUM
     Route: 065
     Dates: start: 20170126, end: 20170609
  79. INDOMETACIN [Concomitant]
     Active Substance: INDOMETHACIN
     Route: 065
     Dates: start: 20170419, end: 20170419
  80. QIANG LI PI PA LU [Concomitant]
     Indication: ASTHMA
  81. PULMICORT RESPULES [Concomitant]
     Active Substance: BUDESONIDE
     Indication: COUGH
     Route: 055
     Dates: start: 20170420, end: 20170422
  82. OMEPRAZOLE SODIUM [Concomitant]
     Active Substance: OMEPRAZOLE SODIUM
     Route: 065
     Dates: start: 20170422, end: 20170425
  83. METHYLPREDNISOLONE SODIUM SUCCINATE. [Concomitant]
     Active Substance: METHYLPREDNISOLONE SODIUM SUCCINATE
     Route: 065
     Dates: start: 20170513, end: 20170515
  84. DIAMMONIUM GLYCYRRHIZINATE [Concomitant]
     Active Substance: HERBALS\DIAMMONIUM GLYCYRRHIZINATE
     Route: 065
     Dates: start: 20170602, end: 20170609
  85. METHYLPREDNISOLONE SODIUM SUCCINATE. [Concomitant]
     Active Substance: METHYLPREDNISOLONE SODIUM SUCCINATE
     Route: 065
     Dates: start: 20170610, end: 20170617
  86. ACETYLCYSTEINE. [Concomitant]
     Active Substance: ACETYLCYSTEINE
     Indication: ASTHMA
     Route: 065
     Dates: start: 20170610, end: 20170617
  87. MOMETASONE FUROATE. [Concomitant]
     Active Substance: MOMETASONE FUROATE
     Indication: ECZEMA
     Route: 065
     Dates: start: 20170715, end: 20170716
  88. ROXITHROMYCIN [Concomitant]
     Active Substance: ROXITHROMYCIN
     Route: 065
     Dates: start: 20170730, end: 20170812
  89. PSEUDOEPHEDRINE HYDROCHLORIDE. [Concomitant]
     Active Substance: PSEUDOEPHEDRINE HYDROCHLORIDE
     Route: 065
     Dates: start: 20170807, end: 20170810
  90. DEXTROMETHORPHAN HYDROBROMIDE. [Concomitant]
     Active Substance: DEXTROMETHORPHAN HYDROBROMIDE
     Route: 065
     Dates: start: 20171013, end: 20171013
  91. DEXTROMETHORPHAN HYDROBROMIDE. [Concomitant]
     Active Substance: DEXTROMETHORPHAN HYDROBROMIDE
     Indication: NASOPHARYNGITIS
     Route: 065
     Dates: start: 20180112, end: 20180117
  92. LEVOFLOXACIN. [Concomitant]
     Active Substance: LEVOFLOXACIN
     Route: 065
     Dates: start: 20180210, end: 20180216
  93. PERTUZUMAB. [Suspect]
     Active Substance: PERTUZUMAB
     Dosage: MAINTENANCE DOSE.?DATE OF LAST DOSE OF BLINDED PERTUZUMAB MG ON 09/MAR/2017: 420MG
     Route: 042
     Dates: start: 20170216

REACTIONS (1)
  - Pneumonia [Recovered/Resolved]

NARRATIVE: CASE EVENT DATE: 20170310
